FAERS Safety Report 4414269-0 (Version None)
Quarter: 2004Q3

REPORT INFORMATION
  Report Type: 
  Country: None (occurrence: None)
  Receive Date: 20040729
  Receipt Date: 20040716
  Transmission Date: 20050211
  Serious: Yes (Death, Hospitalization, Other)
  Sender: FDA-Public Use
  Company Number: 2004048542

PATIENT
  Age: 83 Year
  Sex: Male
  Weight: 45 kg

DRUGS (7)
  1. AMLODIPINE [Suspect]
     Indication: ILL-DEFINED DISORDER
     Dosage: 5 MG (5 MG, 1 IN 1 D), ORAL
     Route: 048
  2. ACETYLCISTEINE (ACETYLCISTEINE) [Suspect]
     Indication: ILL-DEFINED DISORDER
     Dosage: ORAL
     Route: 048
  3. ROXITHROMYCIN (ROXITHROMYCIN) [Suspect]
     Indication: BRONCHITIS
     Dosage: (1 IN 1 D), ORAL
     Route: 048
     Dates: start: 20040617, end: 20040617
  4. GEMCITABINE (GENCITABINE) [Suspect]
     Indication: PLEURAL NEOPLASM
     Dosage: INTRAVENOUS
     Route: 042
     Dates: end: 20040201
  5. CO-DIOVAN (HYDROXYCHLOROTHIAZIDE, VALSARTAN) [Suspect]
     Indication: ILL-DEFINED DISORDER
     Dosage: (1 IN 1 D), ORAL
     Route: 048
  6. TROXERUTIN (TROXERUTIN) [Suspect]
     Indication: ILL-DEFINED DISORDER
  7. MORPHINE [Concomitant]

REACTIONS (18)
  - BLOOD PRESSURE DECREASED [None]
  - BRONCHITIS [None]
  - CARDIAC MURMUR [None]
  - COAGULATION FACTOR V LEVEL DECREASED [None]
  - CREATININE RENAL CLEARANCE DECREASED [None]
  - CYANOSIS [None]
  - CYTOLYTIC HEPATITIS [None]
  - DYSPNOEA [None]
  - FALL [None]
  - HEPATIC FAILURE [None]
  - HEPATOMEGALY [None]
  - HYPERKALAEMIA [None]
  - HYPONATRAEMIA [None]
  - LIVEDO RETICULARIS [None]
  - OEDEMA PERIPHERAL [None]
  - PLEURAL EFFUSION [None]
  - PROTHROMBIN TIME PROLONGED [None]
  - RENAL FAILURE [None]
